FAERS Safety Report 4484204-8 (Version None)
Quarter: 2004Q3

REPORT INFORMATION
  Report Type: 
  Country: None (occurrence: None)
  Receive Date: 20040921
  Receipt Date: 20040211
  Transmission Date: 20050211
  Serious: Yes (Hospitalization)
  Sender: FDA-Public Use
  Company Number: 163-20785-04020321

PATIENT
  Age: 73 Year
  Sex: Male
  Weight: 100.6985 kg

DRUGS (2)
  1. THALOMID [Suspect]
     Indication: INTERSTITIAL LUNG DISEASE
     Dosage: 150 MG, DAILY, ORAL
     Route: 048
     Dates: start: 20031215, end: 20040209
  2. CYTOXAN [Concomitant]

REACTIONS (1)
  - DYSPNOEA EXACERBATED [None]
